FAERS Safety Report 23251174 (Version 2)
Quarter: 2023Q4

REPORT INFORMATION
  Report Type: Spontaneous
  Country: US (occurrence: US)
  Receive Date: 20231201
  Receipt Date: 20231208
  Transmission Date: 20240110
  Serious: Yes (Hospitalization, Other)
  Sender: FDA-Public Use
  Company Number: US-BRISTOL-MYERS SQUIBB COMPANY-2023-173989

PATIENT
  Age: 80 Year
  Sex: Male
  Weight: 64.6 kg

DRUGS (1)
  1. REVLIMID [Suspect]
     Active Substance: LENALIDOMIDE
     Indication: Mantle cell lymphoma
     Dosage: FREQUENCY: ONCE DAYS 21 DAYS AND 7 DAYS OFF
     Route: 048
     Dates: start: 20230814

REACTIONS (2)
  - Loss of consciousness [Unknown]
  - Tremor [Unknown]

NARRATIVE: CASE EVENT DATE: 20231130
